FAERS Safety Report 6457781-5 (Version None)
Quarter: 2009Q4

REPORT INFORMATION
  Report Type: 
  Country: None (occurrence: None)
  Receive Date: 20091120
  Receipt Date: 20091109
  Transmission Date: 20100525
  Serious: Yes (Hospitalization)
  Sender: FDA-Public Use
  Company Number: 2009AL007172

PATIENT
  Age: 80 Year
  Sex: Male

DRUGS (7)
  1. FEVERALL [Suspect]
     Indication: CHEST PAIN
     Dosage: 500 MG; TID;
  2. IBUPROFEN [Suspect]
     Indication: PAIN IN EXTREMITY
     Dosage: 400 MG;
  3. TRAMADOL HYDROCHLORIDE [Suspect]
     Dosage: 50 MG; TID;
  4. RANITIDINE [Suspect]
     Dosage: 150 MG; BID;
  5. MORPHINE SULFATE [Concomitant]
  6. AMITRIPTYLINE [Concomitant]
  7. BISACODYL [Concomitant]

REACTIONS (10)
  - BLOOD ALBUMIN DECREASED [None]
  - DRUG EFFECT DECREASED [None]
  - DRUG INEFFECTIVE [None]
  - DRUG INTERACTION [None]
  - LOSS OF CONSCIOUSNESS [None]
  - MIOSIS [None]
  - OVERDOSE [None]
  - RESPIRATORY DEPRESSION [None]
  - SOMNOLENCE [None]
  - UNRESPONSIVE TO STIMULI [None]
